FAERS Safety Report 7076312-2 (Version None)
Quarter: 2010Q4

REPORT INFORMATION
  Report Type: 
  Country: None (occurrence: None)
  Receive Date: 20101101
  Receipt Date: 20091222
  Transmission Date: 20110411
  Serious: No
  Sender: FDA-Public Use
  Company Number: US-BAYER-200944059NA

PATIENT
  Age: 20 Year
  Sex: Female
  Weight: 52 kg

DRUGS (1)
  1. MIRENA [Suspect]
     Indication: CONTRACEPTION
     Dosage: FREQUENCY: CONTINUOUS
     Route: 015
     Dates: start: 20071001

REACTIONS (5)
  - ABDOMINAL PAIN [None]
  - DYSMENORRHOEA [None]
  - DYSPAREUNIA [None]
  - VAGINAL DISCHARGE [None]
  - VAGINAL HAEMORRHAGE [None]
